FAERS Safety Report 18961905 (Version 3)
Quarter: 2021Q2

REPORT INFORMATION
  Report Type: Report from Study
  Country: None (occurrence: US)
  Receive Date: 20210302
  Receipt Date: 20210406
  Transmission Date: 20210717
  Serious: Yes (Other)
  Sender: FDA-Public Use
  Company Number: US-ABBVIE-21K-163-3794557-00

PATIENT
  Sex: Female
  Weight: 77.41 kg

DRUGS (3)
  1. SINGULAIR [Concomitant]
     Active Substance: MONTELUKAST SODIUM
     Indication: ASTHMA
  2. HUMIRA [Suspect]
     Active Substance: ADALIMUMAB
     Indication: RHEUMATOID ARTHRITIS
     Route: 058
     Dates: start: 201902
  3. XYZAL [Concomitant]
     Active Substance: LEVOCETIRIZINE DIHYDROCHLORIDE
     Indication: HYPERSENSITIVITY

REACTIONS (9)
  - Morton^s neuralgia [Recovering/Resolving]
  - Bursitis [Unknown]
  - Neuropathy peripheral [Recovering/Resolving]
  - Stress fracture [Recovering/Resolving]
  - Neuritis [Not Recovered/Not Resolved]
  - Drug ineffective [Unknown]
  - Bursitis [Recovered/Resolved]
  - Rotator cuff syndrome [Unknown]
  - Pain in extremity [Not Recovered/Not Resolved]

NARRATIVE: CASE EVENT DATE: 2019
